FAERS Safety Report 7294972-8 (Version None)
Quarter: 2011Q1

REPORT INFORMATION
  Report Type: 
  Country: None (occurrence: None)
  Receive Date: 20110216
  Receipt Date: 20110204
  Transmission Date: 20110831
  Serious: Yes (Hospitalization, Other)
  Sender: FDA-Public Use
  Company Number: US-ELI_LILLY_AND_COMPANY-US200907001878

PATIENT
  Sex: Female

DRUGS (4)
  1. FORTEO [Suspect]
     Dosage: 20 UG, DAILY (1/D)
     Dates: end: 20110118
  2. FORTEO [Suspect]
     Dosage: 20 UG, DAILY (1/D)
     Dates: start: 20110122
  3. FORTEO [Suspect]
     Indication: OSTEOPOROSIS
     Dates: start: 20090401
  4. PROCRIT [Concomitant]

REACTIONS (4)
  - MOBILITY DECREASED [None]
  - INJECTION SITE HAEMORRHAGE [None]
  - LUNG NEOPLASM MALIGNANT [None]
  - INJECTION SITE HAEMATOMA [None]
